FAERS Safety Report 4379222-4 (Version None)
Quarter: 2004Q2

REPORT INFORMATION
  Report Type: 
  Country: None (occurrence: None)
  Receive Date: 20040617
  Receipt Date: 20040416
  Transmission Date: 20050107
  Serious: Yes (Life-Threatening, Hospitalization)
  Sender: FDA-Public Use
  Company Number: PHHO2004DE05590

PATIENT
  Age: 12 Year
  Sex: Female
  Weight: 40 kg

DRUGS (6)
  1. SIMULECT [Suspect]
     Indication: RENAL TRANSPLANT
     Dosage: 20 MG, DAY 0
     Route: 042
     Dates: start: 20031220, end: 20031220
  2. SIMULECT [Suspect]
     Dosage: 20 MG, DAY 4
     Route: 042
     Dates: start: 20031224, end: 20031224
  3. NEORAL [Suspect]
     Indication: RENAL TRANSPLANT
     Dosage: 60 MG, BID
     Route: 048
     Dates: start: 20031220
  4. CELLCEPT [Suspect]
     Indication: RENAL TRANSPLANT
     Dosage: 750 MG, BID
     Route: 048
     Dates: start: 20031220, end: 20040401
  5. KEPINOL [Suspect]
     Dosage: NOT REPORTED
     Dates: start: 20040107, end: 20040401
  6. CYMEVENE [Suspect]
     Dosage: NOT REPORTED
     Dates: start: 20031220, end: 20040401

REACTIONS (2)
  - AGRANULOCYTOSIS [None]
  - LEUKOPENIA [None]
